FAERS Safety Report 6111319-0 (Version None)
Quarter: 2009Q1

REPORT INFORMATION
  Report Type: 
  Country: None (occurrence: None)
  Receive Date: 20090311
  Receipt Date: 20090227
  Transmission Date: 20090719
  Serious: Yes (Other)
  Sender: FDA-Public Use
  Company Number: US-ELI_LILLY_AND_COMPANY-US200903000459

PATIENT
  Age: 27 Year
  Sex: Female

DRUGS (2)
  1. CYMBALTA [Suspect]
     Indication: MAJOR DEPRESSION
     Dosage: 1 D/F, UNK
  2. PAXIL [Concomitant]

REACTIONS (3)
  - FOAMING AT MOUTH [None]
  - ORAL MUCOSAL EXFOLIATION [None]
  - STEVENS-JOHNSON SYNDROME [None]
